FAERS Safety Report 5576077-7 (Version None)
Quarter: 2007Q4

REPORT INFORMATION
  Report Type: 
  Country: None (occurrence: None)
  Receive Date: 20071130
  Receipt Date: 20070808
  Transmission Date: 20080405
  Serious: No
  Sender: FDA-Public Use
  Company Number: US200708002049

PATIENT
  Age: 50 Year
  Sex: Female

DRUGS (2)
  1. BYETTA [Suspect]
     Indication: TYPE 2 DIABETES MELLITUS
     Dosage: 5 UG, 2/D, SUBCUTANEOUS
     Route: 058
     Dates: start: 20070801
  2. CITRUCEL                  (METHYLCELLULOSE) [Concomitant]

REACTIONS (4)
  - DIARRHOEA [None]
  - DYSPEPSIA [None]
  - INJECTION SITE EXTRAVASATION [None]
  - NASOPHARYNGITIS [None]
